FAERS Safety Report 9414151 (Version 3)
Quarter: 2014Q1

REPORT INFORMATION
  Report Type: Spontaneous
  Country: US (occurrence: None)
  Receive Date: 20130711
  Receipt Date: 20140219
  Transmission Date: 20141002
  Serious: Yes (Hospitalization, Other)
  Sender: FDA-Public Use
  Company Number: ADR-2013-01015

PATIENT
  Age: 34 Year
  Sex: Male

DRUGS (3)
  1. LIORESAL [Suspect]
     Indication: MUSCLE SPASTICITY
  2. ORAL BACLOFEN [Concomitant]
  3. UNSPECIFIED SLEEP MEDICATION [Concomitant]

REACTIONS (16)
  - Fatigue [None]
  - Hypersomnia [None]
  - Muscle spasticity [None]
  - Overdose [None]
  - Drug withdrawal syndrome [None]
  - Rapid eye movements sleep abnormal [None]
  - Device issue [None]
  - Pruritus [None]
  - Eye pruritus [None]
  - Hypoaesthesia oral [None]
  - Electric shock [None]
  - Product quality issue [None]
  - Device electrical finding [None]
  - Implant site pain [None]
  - Nausea [None]
  - Drug hypersensitivity [None]
